FAERS Safety Report 4318902-3 (Version None)
Quarter: 2004Q1

REPORT INFORMATION
  Report Type: 
  Country: None (occurrence: None)
  Receive Date: 20040318
  Receipt Date: 20040310
  Transmission Date: 20041129
  Serious: Yes (Hospitalization)
  Sender: FDA-Public Use
  Company Number: FR-BRISTOL-MYERS SQUIBB COMPANY-12530671

PATIENT
  Age: 80 Year
  Sex: Male

DRUGS (1)
  1. COAPROVEL TABS [Suspect]
     Route: 048
     Dates: start: 20040201, end: 20040301

REACTIONS (2)
  - BRADYCARDIA [None]
  - HYPERKALAEMIA [None]
